FAERS Safety Report 10086733 (Version 1)
Quarter: 2014Q2

REPORT INFORMATION
  Report Type: Spontaneous
  Country: CN (occurrence: CN)
  Receive Date: 20140418
  Receipt Date: 20140418
  Transmission Date: 20141212
  Serious: Yes (Death)
  Sender: FDA-Public Use
  Company Number: CN-PFIZER INC-2014105666

PATIENT
  Age: 69 Year
  Sex: Male
  Weight: 76 kg

DRUGS (3)
  1. DIFLUCAN [Suspect]
     Indication: FUNGAL INFECTION
     Dosage: 200 MG, 1X/DAY
     Route: 041
     Dates: start: 20130529, end: 20130601
  2. DIFLUCAN [Suspect]
     Dosage: 200 MG, 1X/DAY
     Route: 041
     Dates: start: 20130604
  3. MEROPENEM [Concomitant]
     Indication: INFECTION
     Dosage: 0.5 G, Q8H
     Route: 041
     Dates: start: 20130510, end: 20130524

REACTIONS (2)
  - Dermatitis exfoliative [Fatal]
  - Hepatic enzyme increased [Recovering/Resolving]
